FAERS Safety Report 15095093 (Version 9)
Quarter: 2019Q1

REPORT INFORMATION
  Report Type: Spontaneous
  Country: US (occurrence: US)
  Receive Date: 20180702
  Receipt Date: 20190102
  Transmission Date: 20190417
  Serious: No
  Sender: FDA-Public Use
  Company Number: US-BIOGEN-2018BI00582329

PATIENT
  Age: 34 Year
  Sex: Female

DRUGS (4)
  1. ADDERALL [Concomitant]
     Active Substance: AMPHETAMINE ASPARTATE\AMPHETAMINE SULFATE\DEXTROAMPHETAMINE SACCHARATE\DEXTROAMPHETAMINE SULFATE
     Indication: PRODUCT USED FOR UNKNOWN INDICATION
     Route: 048
  2. TYSABRI [Suspect]
     Active Substance: NATALIZUMAB
     Indication: MULTIPLE SCLEROSIS
     Dosage: INFUSED OVER 1 HOUR
     Route: 042
     Dates: start: 20180125
  3. TYSABRI [Suspect]
     Active Substance: NATALIZUMAB
     Dosage: INFUSED OVER 1 HOUR
     Route: 042
     Dates: start: 20180125
  4. TYSABRI [Suspect]
     Active Substance: NATALIZUMAB
     Route: 065

REACTIONS (21)
  - Decreased immune responsiveness [Unknown]
  - Ear infection [Recovered/Resolved]
  - Bronchitis [Unknown]
  - Drug ineffective [Unknown]
  - Infusion site bruising [Unknown]
  - Erythema [Not Recovered/Not Resolved]
  - Dizziness [Not Recovered/Not Resolved]
  - Flushing [Recovered/Resolved]
  - Dysarthria [Recovered/Resolved]
  - Hypotension [Not Recovered/Not Resolved]
  - Infection [Recovered/Resolved]
  - Chest discomfort [Not Recovered/Not Resolved]
  - Lethargy [Recovered/Resolved]
  - Prescribed underdose [Not Recovered/Not Resolved]
  - Anxiety [Unknown]
  - Sinusitis [Unknown]
  - Skin warm [Not Recovered/Not Resolved]
  - Product dose omission [Unknown]
  - Vein collapse [Unknown]
  - Fungal infection [Recovered/Resolved]
  - Influenza [Recovered/Resolved]

NARRATIVE: CASE EVENT DATE: 201804
